FAERS Safety Report 13444425 (Version 1)
Quarter: 2017Q2

REPORT INFORMATION
  Report Type: Spontaneous
  Country: BR (occurrence: BR)
  Receive Date: 20170414
  Receipt Date: 20170414
  Transmission Date: 20170830
  Serious: Yes (Other)
  Sender: FDA-Public Use
  Company Number: BR-BIOMARINAP-BR-2017-113635

PATIENT
  Age: 17 Year
  Sex: Male
  Weight: 44 kg

DRUGS (1)
  1. ALDURAZYME [Suspect]
     Active Substance: LARONIDASE
     Indication: MUCOPOLYSACCHARIDOSIS I
     Dosage: UNK, QOW
     Route: 042
     Dates: start: 20060510, end: 20170403

REACTIONS (7)
  - Off label use [Unknown]
  - Pyrexia [Recovering/Resolving]
  - Headache [Recovering/Resolving]
  - Drug prescribing error [Unknown]
  - Corneal opacity [Not Recovered/Not Resolved]
  - Vomiting [Recovering/Resolving]
  - Therapeutic response unexpected [Unknown]
